FAERS Safety Report 8227178-6 (Version None)
Quarter: 2012Q1

REPORT INFORMATION
  Report Type: 
  Country: None (occurrence: None)
  Receive Date: 20120322
  Receipt Date: 20120315
  Transmission Date: 20120608
  Serious: Yes (Life-Threatening, Hospitalization)
  Sender: FDA-Public Use
  Company Number: DE-JNJFOC-20120104454

PATIENT
  Sex: Female

DRUGS (2)
  1. XARELTO [Suspect]
     Indication: THROMBOSIS PROPHYLAXIS
     Route: 065
  2. XARELTO [Suspect]
     Indication: HIP ARTHROPLASTY
     Route: 065

REACTIONS (4)
  - JAUNDICE [None]
  - HEPATIC FAILURE [None]
  - COMA HEPATIC [None]
  - HEPATIC FUNCTION ABNORMAL [None]
